FAERS Safety Report 5884973-6 (Version None)
Quarter: 2008Q3

REPORT INFORMATION
  Report Type: 
  Country: None (occurrence: None)
  Receive Date: 20080916
  Receipt Date: 20080805
  Transmission Date: 20090109
  Serious: Yes (Hospitalization)
  Sender: FDA-Public Use
  Company Number: D0058270A

PATIENT
  Age: 59 Year
  Sex: Female
  Weight: 88.3 kg

DRUGS (5)
  1. AVANDAMET [Suspect]
     Indication: DIABETES MELLITUS
     Dosage: 1004MG PER DAY
     Route: 065
     Dates: start: 20050701
  2. EUTHYROX [Concomitant]
     Route: 065
     Dates: start: 19910101
  3. APROMAL TAB [Concomitant]
     Route: 065
     Dates: start: 20050101
  4. METOPROLOL TARTRATE [Concomitant]
     Route: 065
     Dates: start: 19910101
  5. ASPIRIN [Concomitant]
     Route: 065
     Dates: start: 20050101

REACTIONS (1)
  - CORONARY ARTERY DISEASE [None]
